FAERS Safety Report 7083880-3 (Version None)
Quarter: 2010Q4

REPORT INFORMATION
  Report Type: 
  Country: None (occurrence: None)
  Receive Date: 20101104
  Receipt Date: 20091111
  Transmission Date: 20110411
  Serious: No
  Sender: FDA-Public Use
  Company Number: US-ABBOTT-09P-163-0608710-00

PATIENT
  Sex: Male
  Weight: 99.88 kg

DRUGS (4)
  1. KALETRA [Suspect]
     Indication: HIV TEST POSITIVE
     Dates: start: 20080101, end: 20091106
  2. GLIPIZIDE W/METFORMIN [Concomitant]
     Indication: DIABETES MELLITUS
     Dosage: 500/?
     Route: 048
  3. AMLODIPINE [Concomitant]
     Indication: HYPERTENSION
     Route: 048
  4. HYDROCHLOROTHIAZIDE [Concomitant]
     Indication: FLUID RETENTION
     Route: 048

REACTIONS (5)
  - COUGH [None]
  - FATIGUE [None]
  - INFLUENZA [None]
  - INSOMNIA [None]
  - VOMITING [None]
